FAERS Safety Report 6056514-4 (Version None)
Quarter: 2009Q1

REPORT INFORMATION
  Report Type: 
  Country: None (occurrence: None)
  Receive Date: 20090129
  Receipt Date: 20080411
  Transmission Date: 20090719
  Serious: No
  Sender: FDA-Public Use
  Company Number: A0717596A

PATIENT
  Age: 38 Year
  Sex: Female

DRUGS (2)
  1. COMBIVIR [Suspect]
     Indication: PROPHYLAXIS
     Dosage: 4TAB PER DAY
     Route: 048
     Dates: start: 20080324, end: 20080327
  2. UNKNOWN [Concomitant]

REACTIONS (5)
  - DRUG ADMINISTRATION ERROR [None]
  - FATIGUE [None]
  - MALAISE [None]
  - NAUSEA [None]
  - OVERDOSE [None]
